FAERS Safety Report 4591483-5 (Version None)
Quarter: 2005Q1

REPORT INFORMATION
  Report Type: 
  Country: None (occurrence: None)
  Receive Date: 20050222
  Receipt Date: 20050215
  Transmission Date: 20050727
  Serious: Yes (Hospitalization)
  Sender: FDA-Public Use
  Company Number: PHBS2005JP02314

PATIENT
  Age: 69 Year
  Sex: Female

DRUGS (2)
  1. LAMISIL [Suspect]
     Indication: TINEA PEDIS
     Dosage: 125 MG, QD, ORAL
     Route: 048
     Dates: start: 20040606, end: 20041123
  2. LAMISIL [Suspect]
     Indication: TINEA PEDIS
     Dosage: TOPICAL
     Route: 061
     Dates: start: 20040531, end: 20041123

REACTIONS (1)
  - GRANULOCYTOPENIA [None]
